APPROVED DRUG PRODUCT: TRAMADOL HYDROCHLORIDE
Active Ingredient: TRAMADOL HYDROCHLORIDE
Strength: 50MG
Dosage Form/Route: TABLET;ORAL
Application: A205702 | Product #001
Applicant: MACLEODS PHARMACEUTICALS LTD
Approved: Sep 25, 2015 | RLD: No | RS: No | Type: DISCN